FAERS Safety Report 8446105-X (Version None)
Quarter: 2012Q2

REPORT INFORMATION
  Report Type: 
  Country: None (occurrence: None)
  Receive Date: 20120618
  Receipt Date: 20120608
  Transmission Date: 20120825
  Serious: Yes (Hospitalization)
  Sender: FDA-Public Use
  Company Number: US-ABBOTT-12P-163-0944034-00

PATIENT
  Sex: Female

DRUGS (1)
  1. HUMIRA [Suspect]
     Indication: CROHN'S DISEASE
     Dates: start: 20120101

REACTIONS (4)
  - DIARRHOEA HAEMORRHAGIC [None]
  - CLOSTRIDIAL INFECTION [None]
  - CROHN'S DISEASE [None]
  - ABDOMINAL PAIN [None]
